FAERS Safety Report 18340607 (Version 1)
Quarter: 2020Q4

REPORT INFORMATION
  Report Type: Spontaneous
  Country: US (occurrence: US)
  Receive Date: 20201002
  Receipt Date: 20201002
  Transmission Date: 20210113
  Serious: No
  Sender: FDA-Public Use
  Company Number: US-009507513-2009USA011177

PATIENT
  Sex: Female

DRUGS (2)
  1. MOMETASONE FUROATE. [Suspect]
     Active Substance: MOMETASONE FUROATE
  2. ELOCON [Suspect]
     Active Substance: MOMETASONE FUROATE
     Indication: DRUG HYPERSENSITIVITY
     Dosage: 15 MILLIGRAM, PRN

REACTIONS (2)
  - Drug hypersensitivity [Recovering/Resolving]
  - Expired product administered [Unknown]
